FAERS Safety Report 6430729-5 (Version None)
Quarter: 2009Q4

REPORT INFORMATION
  Report Type: 
  Country: None (occurrence: None)
  Receive Date: 20091106
  Receipt Date: 20091028
  Transmission Date: 20100525
  Serious: Yes (Other)
  Sender: FDA-Public Use
  Company Number: US-JNJFOC-20091009271

PATIENT
  Sex: Female
  Weight: 68.04 kg

DRUGS (5)
  1. REMICADE [Suspect]
     Route: 042
     Dates: start: 20060516, end: 20081001
  2. REMICADE [Suspect]
     Route: 042
     Dates: start: 20060516, end: 20081001
  3. REMICADE [Suspect]
     Route: 042
     Dates: start: 20060516, end: 20081001
  4. REMICADE [Suspect]
     Route: 042
     Dates: start: 20060516, end: 20081001
  5. REMICADE [Suspect]
     Indication: RHEUMATOID ARTHRITIS
     Route: 042
     Dates: start: 20060516, end: 20081001

REACTIONS (1)
  - PNEUMOCYSTIS JIROVECI PNEUMONIA [None]
